FAERS Safety Report 8791816 (Version 1)
Quarter: 2012Q4

REPORT INFORMATION
  Report Type: 
  Country: DE (occurrence: DE)
  Receive Date: 20120918
  Receipt Date: 20120918
  Transmission Date: 20130627
  Serious: Yes (Other)
  Sender: FDA-Public Use
  Company Number: DE-EISAI INC-E7389-02992-SPO-DE

PATIENT
  Sex: Female

DRUGS (1)
  1. HALAVEN [Suspect]
     Route: 041

REACTIONS (1)
  - Palmar-plantar erythrodysaesthesia syndrome [Unknown]
